FAERS Safety Report 9691691 (Version 2)
Quarter: 2018Q4

REPORT INFORMATION
  Report Type: Spontaneous
  Country: US (occurrence: US)
  Receive Date: 20131115
  Receipt Date: 20181018
  Transmission Date: 20190205
  Serious: Yes (Hospitalization, Other)
  Sender: FDA-Public Use
  Company Number: US-TEVA-444424USA

PATIENT
  Age: 45 Year
  Sex: Female

DRUGS (2)
  1. CITALOPRAM [Suspect]
     Active Substance: CITALOPRAM HYDROBROMIDE
     Route: 065
  2. QUININE SULFATE. [Suspect]
     Active Substance: QUININE SULFATE
     Route: 048

REACTIONS (12)
  - Electrocardiogram QRS complex prolonged [Unknown]
  - Retinal toxicity [Recovering/Resolving]
  - Shock [Unknown]
  - Dyschromatopsia [Not Recovered/Not Resolved]
  - Photosensitivity reaction [Not Recovered/Not Resolved]
  - Hypotension [Recovering/Resolving]
  - Electrocardiogram QT prolonged [Unknown]
  - Overdose [Recovering/Resolving]
  - Seizure [Unknown]
  - Arrhythmia [Unknown]
  - Diastolic dysfunction [Unknown]
  - Lactic acidosis [Unknown]
